FAERS Safety Report 25807797 (Version 1)
Quarter: 2025Q3

REPORT INFORMATION
  Report Type: Spontaneous
  Country: CA (occurrence: CA)
  Receive Date: 20250916
  Receipt Date: 20250916
  Transmission Date: 20251021
  Serious: Yes (Other)
  Sender: PFIZER
  Company Number: CA-PFIZER INC-202500181181

PATIENT
  Age: 65 Year
  Sex: Female

DRUGS (5)
  1. IXIFI [Suspect]
     Active Substance: INFLIXIMAB-QBTX
     Indication: Rheumatoid arthritis
     Route: 042
     Dates: start: 20250725
  2. IXIFI [Suspect]
     Active Substance: INFLIXIMAB-QBTX
     Dates: start: 20250905
  3. LEFLUNOMIDE [Concomitant]
     Active Substance: LEFLUNOMIDE
     Dates: start: 20210114
  4. SULFASALAZINE [Concomitant]
     Active Substance: SULFASALAZINE
     Dates: start: 20131015
  5. XELJANZ [Concomitant]
     Active Substance: TOFACITINIB CITRATE
     Route: 048
     Dates: start: 20200221

REACTIONS (1)
  - Knee arthroplasty [Recovering/Resolving]

NARRATIVE: CASE EVENT DATE: 20250101
